FAERS Safety Report 7916936-0 (Version None)
Quarter: 2011Q4

REPORT INFORMATION
  Report Type: 
  Country: None (occurrence: None)
  Receive Date: 20111116
  Receipt Date: 20111102
  Transmission Date: 20120403
  Serious: Yes (Hospitalization, Other)
  Sender: FDA-Public Use
  Company Number: DE-CELGENEUS-062-21880-11111140

PATIENT
  Age: 34 Year
  Sex: Female
  Weight: 61 kg

DRUGS (5)
  1. REVLIMID [Suspect]
     Dosage: 20 MILLIGRAM
     Route: 048
     Dates: end: 20111020
  2. CYTARABINE [Concomitant]
     Route: 058
     Dates: start: 20111010, end: 20111014
  3. SORAFENIB [Concomitant]
     Dosage: 800 MILLIGRAM
     Route: 065
     Dates: start: 20111001
  4. REVLIMID [Suspect]
     Dosage: 25 MILLIGRAM
     Route: 048
     Dates: start: 20110904
  5. PLATELETS [Concomitant]
     Route: 065

REACTIONS (10)
  - NEOPLASM PROGRESSION [None]
  - ACUTE RESPIRATORY FAILURE [None]
  - SEPSIS [None]
  - DIARRHOEA [None]
  - ACUTE GRAFT VERSUS HOST DISEASE IN SKIN [None]
  - ACUTE MYELOID LEUKAEMIA [None]
  - DYSPNOEA EXERTIONAL [None]
  - BRONCHOPULMONARY ASPERGILLOSIS [None]
  - PYREXIA [None]
  - ASTHENIA [None]
